FAERS Safety Report 9353797 (Version 1)
Quarter: 2013Q2

REPORT INFORMATION
  Report Type: Report from Study
  Country: JP (occurrence: JP)
  Receive Date: 20130618
  Receipt Date: 20130618
  Transmission Date: 20140414
  Serious: Yes (Other)
  Sender: FDA-Public Use
  Company Number: JP-009507513-1304JPN010785

PATIENT
  Age: 33 Year
  Sex: Female

DRUGS (1)
  1. FOLLITROPIN BETA [Suspect]
     Dosage: 150 IU, QD
     Route: 030
     Dates: start: 20080129, end: 20080209

REACTIONS (2)
  - Abortion [Recovered/Resolved]
  - Ovarian hyperstimulation syndrome [Recovered/Resolved]
